FAERS Safety Report 10550801 (Version 1)
Quarter: 2014Q4

REPORT INFORMATION
  Report Type: Spontaneous
  Country: FR (occurrence: None)
  Receive Date: 20141027
  Receipt Date: 20141027
  Transmission Date: 20150529
  Serious: Yes (Life-Threatening)
  Sender: FDA-Public Use
  Company Number: FR-20140344

PATIENT
  Age: 66 Year
  Sex: Female

DRUGS (18)
  1. LIPIODOL [Suspect]
     Active Substance: ETHIODIZED OIL
     Indication: THERAPEUTIC EMBOLISATION
     Dosage: (1 IN 1 D) INTRAVENOUS (NOT OTHERWISE SPECIFIED)
     Route: 042
     Dates: start: 20140923, end: 20140923
  2. DUROGESIC (FENTANYL) (FENTANYL) [Concomitant]
  3. DIFFU-K (POTASSIUM CHLORIDE) (POTASSIUM CHLORIDE) [Concomitant]
  4. TEMESTA (LORAZEPAM) (LORAZEPAM) [Concomitant]
  5. ACUPAN [Suspect]
     Active Substance: NEFOPAM HYDROCHLORIDE
     Indication: PRODUCT USED FOR UNKNOWN INDICATION
     Dosage: (1 D) INTRAVENOUS (NOT OTHERWISE SPECIFIED)
     Route: 042
     Dates: start: 20140923, end: 20140923
  6. ATARAX [Concomitant]
     Active Substance: HYDROXYZINE\HYDROXYZINE HYDROCHLORIDE
  7. MIDAZOLAM [Concomitant]
     Active Substance: MIDAZOLAM\MIDAZOLAM HYDROCHLORIDE
  8. SUFENTANIL [Suspect]
     Active Substance: SUFENTANIL
     Indication: ANAESTHESIA
     Dosage: (1 D) INTRAVENOUS (NOT OTHERWISE SPECIFIED)
     Route: 042
     Dates: start: 20140923, end: 20140923
  9. ATRACURIUM [Suspect]
     Active Substance: ATRACURIUM
     Indication: ANAESTHESIA
     Dosage: INTRAVENOUS (NOT OTHERWISE SPECIFIED)
     Route: 042
     Dates: start: 20140923, end: 20140923
  10. DEXAMETHASONE (DEXAMETHASONE) (DEXAMETHASONE) [Concomitant]
     Active Substance: DEXAMETHASONE
  11. PROPOFOL (PROPOFOL) (PROPOFOL) [Concomitant]
  12. TRAMADOL (TRAMADOL) [Suspect]
     Active Substance: TRAMADOL
     Indication: PRODUCT USED FOR UNKNOWN INDICATION
     Dosage: (1 D) INTRAVENOUS (NOT OTHERWISE SPECIFIED)
     Route: 042
     Dates: start: 20140923, end: 20140923
  13. SEVORANE (SEVOFLURANE) (SEVOFLURANE) [Concomitant]
  14. DROLEPTAN (DROPERIDOL) (DROPERIDOL) [Concomitant]
     Active Substance: DROPERIDOL
  15. DOXYCYCLINE HYCLATE. [Concomitant]
     Active Substance: DOXYCYCLINE HYCLATE
  16. METAMINE PHAPHARMA (KETAMINE HYDROCHLORIDE) (KETAMINE HYDROCHLORIDE) [Concomitant]
  17. EPHEDRINE (EPHEDRINE) (EPHEDRINE) [Concomitant]
  18. AMOXICILLINE/ACIDE CALVULANIQ, SANDOZ (AMOXICILLIN TRIHYDRATE, CLAVULANATE POTASSIUM) [Suspect]
     Active Substance: AMOXICILLIN\CLAVULANIC ACID
     Indication: PRODUCT USED FOR UNKNOWN INDICATION
     Dosage: INTRAVENOUS (NOT OTHERWISE SPECIFIED)
     Route: 042
     Dates: start: 20140923, end: 20140923

REACTIONS (3)
  - Ventricular tachycardia [None]
  - Coronary artery occlusion [None]
  - Ventricular extrasystoles [None]

NARRATIVE: CASE EVENT DATE: 20140923
